FAERS Safety Report 21631318 (Version 1)
Quarter: 2022Q4

REPORT INFORMATION
  Report Type: Spontaneous
  Country: IT (occurrence: IT)
  Receive Date: 20221123
  Receipt Date: 20221123
  Transmission Date: 20230113
  Serious: Yes (Other)
  Sender: FDA-Public Use
  Company Number: None

PATIENT
  Age: 72 Year
  Sex: Male
  Weight: 59 kg

DRUGS (4)
  1. OXALIPLATIN [Suspect]
     Active Substance: OXALIPLATIN
     Indication: Colon cancer
     Dosage: 160 MG; 160MG FOR 120 MINUTES
     Route: 042
     Dates: start: 20220919, end: 20221110
  2. CAPECITABINE [Suspect]
     Active Substance: CAPECITABINE
     Indication: Colon cancer
     Dosage: 3000MG
     Route: 048
     Dates: start: 20220919, end: 20221110
  3. ONDANSETRON [Concomitant]
     Active Substance: ONDANSETRON
     Indication: Nausea
     Dosage: 8 MG, Q15MN; 8MG FOR 15 MINUTES
     Route: 042
     Dates: start: 20220919, end: 20221110
  4. DEXAMETHASONE [Concomitant]
     Active Substance: DEXAMETHASONE
     Indication: Drug hypersensitivity
     Dosage: 8 MG; 8MG FOR 120 MINUTES
     Route: 042
     Dates: start: 20220919, end: 20221110

REACTIONS (8)
  - Dysentery [Not Recovered/Not Resolved]
  - Increased appetite [Not Recovered/Not Resolved]
  - Peripheral coldness [Recovering/Resolving]
  - Paraesthesia [Recovering/Resolving]
  - Abdominal pain upper [Recovering/Resolving]
  - Asthenia [Recovering/Resolving]
  - Dysgeusia [Not Recovered/Not Resolved]
  - Cough [Not Recovered/Not Resolved]

NARRATIVE: CASE EVENT DATE: 20220920
